FAERS Safety Report 8356088-9 (Version None)
Quarter: 2012Q2

REPORT INFORMATION
  Report Type: 
  Country: None (occurrence: None)
  Receive Date: 20120514
  Receipt Date: 20120501
  Transmission Date: 20120825
  Serious: Yes (Hospitalization)
  Sender: FDA-Public Use
  Company Number: JP-UCBSA-057064

PATIENT
  Age: 74 Year
  Sex: Male

DRUGS (2)
  1. CIMZIA [Suspect]
     Route: 058
     Dates: start: 20091216, end: 20120404
  2. CIMZIA [Suspect]
     Indication: RHEUMATOID ARTHRITIS
     Dosage: 275-08-003:200 MG ONCE IN 2 WEEKS + 400 MG ONCE EVERY 2 WEEKS
     Route: 058

REACTIONS (1)
  - PLEURISY [None]
